FAERS Safety Report 8959079 (Version 3)
Quarter: 2013Q2

REPORT INFORMATION
  Report Type: Spontaneous
  Country: US (occurrence: US)
  Receive Date: 20121212
  Receipt Date: 20130423
  Transmission Date: 20140414
  Serious: No
  Sender: FDA-Public Use
  Company Number: US-009507513-1212USA002922

PATIENT
  Sex: Female

DRUGS (2)
  1. SAPHRIS [Suspect]
     Dosage: 10 MG, UNK
     Route: 060
  2. SAPHRIS [Suspect]
     Dosage: 5 UNK, UNK
     Route: 060

REACTIONS (3)
  - Amnesia [Recovered/Resolved]
  - Blood glucose abnormal [Unknown]
  - Sleep-related eating disorder [Recovered/Resolved]
